FAERS Safety Report 8444445-1 (Version None)
Quarter: 2012Q2

REPORT INFORMATION
  Report Type: 
  Country: None (occurrence: None)
  Receive Date: 20120612
  Receipt Date: 20120612
  Transmission Date: 20120825
  Serious: No
  Sender: FDA-Public Use
  Company Number: None

PATIENT

DRUGS (3)
  1. CYMBALTA [Suspect]
     Dosage: 30 MG ORAL
     Route: 048
  2. CYMBALTA [Suspect]
     Dosage: 60 MG ORAL
     Route: 048
  3. CYMBALTA [Suspect]
     Dosage: 20 MG ORAL
     Route: 048

REACTIONS (3)
  - INTERCEPTED DRUG DISPENSING ERROR [None]
  - PRODUCT PACKAGING QUANTITY ISSUE [None]
  - MEDICATION ERROR [None]
